FAERS Safety Report 22365563 (Version 1)
Quarter: 2023Q2

REPORT INFORMATION
  Report Type: Spontaneous
  Country: US (occurrence: US)
  Receive Date: 20230525
  Receipt Date: 20230525
  Transmission Date: 20230722
  Serious: No
  Sender: FDA-Public Use
  Company Number: US-AIMMUNE THERAPEUTICS, INC.-2023AIMT00467

PATIENT

DRUGS (3)
  1. PALFORZIA [Suspect]
     Active Substance: PEANUT
     Indication: Food allergy
     Dosage: IDE (0.5MG-6MG), ONCE
     Route: 048
  2. PALFORZIA [Suspect]
     Active Substance: PEANUT
     Dosage: 20 MG, ONCE, ONLY DOSE PRIOR EVENT
     Route: 048
  3. PALFORZIA [Suspect]
     Active Substance: PEANUT
     Dosage: 12 MG, 1X/DAY, DOSE DECREASED
     Route: 048

REACTIONS (1)
  - Abdominal pain [Recovered/Resolved]
